FAERS Safety Report 26130639 (Version 1)
Quarter: 2025Q4

REPORT INFORMATION
  Report Type: Spontaneous
  Country: US (occurrence: None)
  Receive Date: 20251205
  Receipt Date: 20251205
  Transmission Date: 20260117
  Serious: Yes (Hospitalization)
  Sender: FDA-CTU
  Company Number: None

PATIENT
  Sex: Female

DRUGS (10)
  1. TOBRAMYCIN [Suspect]
     Active Substance: TOBRAMYCIN
     Indication: Cystic fibrosis
     Dosage: INHALE 5 ML (300 MG TOTAL) VIA NEBULIZER TWICE DAILY FOR 28 DAYS ON, 28 DAYS OFF
     Route: 055
     Dates: start: 20250610
  2. CREON [Concomitant]
     Active Substance: PANCRELIPASE AMYLASE\PANCRELIPASE LIPASE\PANCRELIPASE PROTEASE
  3. CYCLOBENZAPRINE [Concomitant]
     Active Substance: CYCLOBENZAPRINE
  4. CYMBALTA [Concomitant]
     Active Substance: DULOXETINE HYDROCHLORIDE
  5. LANTUS [Concomitant]
     Active Substance: INSULIN GLARGINE
  6. LYRICA [Concomitant]
     Active Substance: PREGABALIN
  7. NOVOLOG [Concomitant]
     Active Substance: INSULIN ASPART
  8. PULMOZYME [Concomitant]
     Active Substance: DORNASE ALFA
  9. TRIKAFTA [Concomitant]
     Active Substance: ELEXACAFTOR\IVACAFTOR\TEZACAFTOR
  10. URSODIOL [Concomitant]
     Active Substance: URSODIOL

REACTIONS (2)
  - Therapy interrupted [None]
  - Nonspecific reaction [None]
